FAERS Safety Report 8461351-7 (Version None)
Quarter: 2012Q2

REPORT INFORMATION
  Report Type: 
  Country: None (occurrence: None)
  Receive Date: 20120625
  Receipt Date: 20120612
  Transmission Date: 20120825
  Serious: Yes (Other)
  Sender: FDA-Public Use
  Company Number: GR-JNJFOC-20120607034

PATIENT
  Age: 41 Year
  Sex: Female

DRUGS (4)
  1. INFLIXIMAB, RECOMBINANT [Suspect]
     Indication: CROHN'S DISEASE
     Dosage: THERAPY ADMINISTERED FOR 7 YEARS
     Route: 042
  2. INFLIXIMAB, RECOMBINANT [Suspect]
     Dosage: TRANSIENT INCREASE
     Route: 042
  3. INFLIXIMAB, RECOMBINANT [Suspect]
     Dosage: INITIATED AT WEEKS 0,2,6 THEN EVERY 8 WEEKS
     Route: 042
  4. INFLIXIMAB, RECOMBINANT [Suspect]
     Dosage: INITIATED AT WEEKS 0,2,6 THEN EVERY 8 WEEKS
     Route: 042
     Dates: end: 20060101

REACTIONS (2)
  - MATERNAL EXPOSURE DURING PREGNANCY [None]
  - GRANULAR CELL TUMOUR [None]
